FAERS Safety Report 7499672-7 (Version None)
Quarter: 2011Q2

REPORT INFORMATION
  Report Type: 
  Country: None (occurrence: None)
  Receive Date: 20110524
  Receipt Date: 20110517
  Transmission Date: 20111010
  Serious: Yes (Other)
  Sender: FDA-Public Use
  Company Number: CN-ROCHE-641901

PATIENT
  Sex: Female
  Weight: 60 kg

DRUGS (4)
  1. CELLCEPT [Suspect]
     Dosage: MORNING:1 GRAM; EVENING:0.5 GRAM
     Route: 048
  2. CELLCEPT [Suspect]
     Indication: RENAL TRANSPLANT
     Route: 048
     Dates: start: 20010620
  3. CYCLOSPORINE [Suspect]
     Indication: RENAL TRANSPLANT
     Dosage: TRADE NAME: XINSAISIPING. GENERIC NAME: CYCLOSPORIN A.
     Route: 048
     Dates: start: 20010620
  4. BAILING CAPSULE [Concomitant]
     Indication: RENAL TRANSPLANT
     Route: 048
     Dates: start: 20010620

REACTIONS (4)
  - BLOOD UREA INCREASED [None]
  - CEREBRAL ISCHAEMIA [None]
  - FATIGUE [None]
  - BLOOD URIC ACID INCREASED [None]
